FAERS Safety Report 16735367 (Version 2)
Quarter: 2019Q3

REPORT INFORMATION
  Report Type: Spontaneous
  Country: TR (occurrence: TR)
  Receive Date: 20190823
  Receipt Date: 20190904
  Transmission Date: 20191005
  Serious: Yes (Other)
  Sender: FDA-Public Use
  Company Number: TR-JNJFOC-20190821171

PATIENT
  Age: 22 Year
  Sex: Male

DRUGS (1)
  1. SIMPONI [Suspect]
     Active Substance: GOLIMUMAB
     Indication: AXIAL SPONDYLOARTHRITIS
     Route: 058

REACTIONS (1)
  - Uveitis [Recovering/Resolving]
